FAERS Safety Report 8891265 (Version 1)
Quarter: 2012Q4

REPORT INFORMATION
  Report Type: 
  Country: US (occurrence: US)
  Receive Date: 20121107
  Receipt Date: 20121107
  Transmission Date: 20130627
  Serious: No
  Sender: FDA-Public Use
  Company Number: US-VERTEX PHARMACEUTICAL INC.-2012-024059

PATIENT
  Sex: Female
  Weight: 70 kg

DRUGS (4)
  1. INCIVEK [Suspect]
     Indication: HEPATITIS C
     Dosage: 750 mg, tid
     Route: 048
     Dates: start: 201209
  2. RIBAVIRIN [Suspect]
     Indication: HEPATITIS C
     Dosage: 600mg am, 400mg pm
     Dates: start: 201209
  3. RIBAVIRIN [Suspect]
     Dosage: 600 mg, UNK
     Dates: start: 201210, end: 20121101
  4. PEGASYS [Suspect]
     Indication: HEPATITIS C
     Dosage: 180 ?g, weekly
     Route: 058
     Dates: start: 201209

REACTIONS (2)
  - Anaemia [Not Recovered/Not Resolved]
  - Nausea [Recovered/Resolved]
